FAERS Safety Report 23350274 (Version 1)
Quarter: 2023Q4

REPORT INFORMATION
  Report Type: Spontaneous
  Country: US (occurrence: None)
  Receive Date: 20231228
  Receipt Date: 20231228
  Transmission Date: 20240110
  Serious: No
  Sender: FDA-Public Use
  Company Number: None

PATIENT
  Age: 62 Year
  Sex: Female
  Weight: 71.21 kg

DRUGS (2)
  1. COSENTYX [Suspect]
     Active Substance: SECUKINUMAB
     Indication: Spondyloarthropathy
     Dosage: FREQUENCY : WEEKLY;?
     Route: 058
     Dates: start: 202210
  2. COSENTYX [Suspect]
     Active Substance: SECUKINUMAB
     Indication: Senile osteoporosis

REACTIONS (1)
  - Nasopharyngitis [None]
